FAERS Safety Report 14989669 (Version 4)
Quarter: 2018Q2

REPORT INFORMATION
  Report Type: Spontaneous
  Country: ES (occurrence: ES)
  Receive Date: 20180608
  Receipt Date: 20180626
  Transmission Date: 20180711
  Serious: Yes (Other)
  Sender: FDA-Public Use
  Company Number: PHHY2018ES017135

PATIENT
  Age: 21 Year
  Sex: Female

DRUGS (10)
  1. METHOTREXATE. [Suspect]
     Active Substance: METHOTREXATE
     Indication: ACUTE LYMPHOCYTIC LEUKAEMIA
  2. FILGRASTIM [Suspect]
     Active Substance: FILGRASTIM
     Indication: ACUTE LYMPHOCYTIC LEUKAEMIA
     Dosage: UNK UNK, CYCLIC (DAYS 1 TO 5)
     Route: 065
  3. G-CSF [Suspect]
     Active Substance: GRANULOCYTE COLONY-STIMULATING FACTOR NOS
     Indication: ACUTE LYMPHOCYTIC LEUKAEMIA
     Dosage: 1 DF, CYCLIC (DAYS 1 TO 5)
     Route: 065
  4. CYTARABINE. [Suspect]
     Active Substance: CYTARABINE
     Indication: ACUTE LYMPHOCYTIC LEUKAEMIA
     Dosage: 1 DF, CYCLIC (2G/M2 DAYS 1 TO 5 AND DAY 7, TRIPLE INTRATHECAL THERAPY)
     Route: 037
  5. IDARUBICIN HYDROCHLORIDE. [Suspect]
     Active Substance: IDARUBICIN HYDROCHLORIDE
     Indication: ACUTE LYMPHOCYTIC LEUKAEMIA
     Dosage: 12 MG/M2, 1, 3, 5 DAYS
     Route: 065
  6. CICLOSPORIN [Suspect]
     Active Substance: CYCLOSPORINE
     Indication: PROPHYLAXIS
     Route: 065
  7. FLUDARABINE PHOSPHATE. [Suspect]
     Active Substance: FLUDARABINE PHOSPHATE
     Indication: ACUTE LYMPHOCYTIC LEUKAEMIA
     Dosage: 1 DF, CYCLIC (30MG/M2 DAYS 1 TO 5)
     Route: 065
  8. CYCLOPHOSPHAMIDE. [Suspect]
     Active Substance: CYCLOPHOSPHAMIDE
     Indication: STEM CELL TRANSPLANT
     Dosage: 60 MG/KG, DAYS 6 AND 5
     Route: 065
  9. METHOTREXATE. [Suspect]
     Active Substance: METHOTREXATE
     Indication: PROPHYLAXIS
     Dosage: 1 DF, CYCLIC (DAYS 1,3 ,6 AND 11-UNKNOWNDAYS 7 AND 3-INTRATHECAL)
     Route: 065
  10. HYDROCORTISONE. [Suspect]
     Active Substance: HYDROCORTISONE
     Indication: ACUTE LYMPHOCYTIC LEUKAEMIA
     Dosage: 1 DF, CYCLIC (TRIPLE INTRATHECAL THERAPY)
     Route: 037

REACTIONS (5)
  - Bronchopulmonary aspergillosis [Unknown]
  - Pulmonary embolism [Unknown]
  - Neoplasm recurrence [Recovered/Resolved]
  - Cytomegalovirus infection [Unknown]
  - Subclavian vein thrombosis [Unknown]

NARRATIVE: CASE EVENT DATE: 201503
